FAERS Safety Report 12423528 (Version 1)
Quarter: 2016Q2

REPORT INFORMATION
  Report Type: Spontaneous
  Country: US (occurrence: None)
  Receive Date: 20160531
  Receipt Date: 20160531
  Transmission Date: 20160815
  Serious: Yes (Other)
  Sender: FDA-Public Use
  Company Number: None

PATIENT
  Age: 84 Year
  Sex: Female
  Weight: 53.52 kg

DRUGS (9)
  1. BABY ASPIRIN [Concomitant]
     Active Substance: ASPIRIN
  2. IMDUR [Concomitant]
     Active Substance: ISOSORBIDE MONONITRATE
  3. CALCIUM [Concomitant]
     Active Substance: CALCIUM
  4. PROCARDIA [Concomitant]
     Active Substance: NIFEDIPINE
  5. POTASSIUM [Concomitant]
     Active Substance: POTASSIUM
  6. XARELTO [Suspect]
     Active Substance: RIVAROXABAN
     Indication: ANTICOAGULANT THERAPY
     Route: 048
     Dates: start: 20160420, end: 20160421
  7. MULTIVITAMIN [Concomitant]
     Active Substance: VITAMINS
  8. PRILOSEC [Concomitant]
     Active Substance: OMEPRAZOLE MAGNESIUM
  9. ZACAR [Concomitant]

REACTIONS (2)
  - Contusion [None]
  - Rectal haemorrhage [None]

NARRATIVE: CASE EVENT DATE: 20160421
